FAERS Safety Report 4380348-X (Version None)
Quarter: 2004Q2

REPORT INFORMATION
  Report Type: 
  Country: None (occurrence: None)
  Receive Date: 20040614
  Receipt Date: 20040602
  Transmission Date: 20050107
  Serious: Yes (Hospitalization, Other)
  Sender: FDA-Public Use
  Company Number: 2004031677

PATIENT
  Age: 23 Year
  Sex: Male

DRUGS (5)
  1. PHENYTOIN SODIUM [Suspect]
     Indication: CONVULSION
     Dosage: 500 MG (1 IN 1 D) NASOGASTRIC TUBE
     Route: 045
     Dates: end: 20040501
  2. HEPARIN FRACTION, SODIUM SALT (HEPARIN FRACTION SODIUM SALT) [Concomitant]
  3. CEFOTAXIME SODIUM [Concomitant]
  4. METRONIDAZOLE [Concomitant]
  5. TEICOPLANIN (TEICOPLANIN) [Concomitant]

REACTIONS (4)
  - ANTICONVULSANT DRUG LEVEL BELOW THERAPEUTIC [None]
  - CONVULSION [None]
  - DRUG INEFFECTIVE [None]
  - SEPSIS [None]
